FAERS Safety Report 8464933-1 (Version None)
Quarter: 2012Q2

REPORT INFORMATION
  Report Type: 
  Country: None (occurrence: None)
  Receive Date: 20120626
  Receipt Date: 20120619
  Transmission Date: 20120825
  Serious: Yes (Hospitalization)
  Sender: FDA-Public Use
  Company Number: JP-JNJFOC-20120611602

PATIENT
  Age: 8 Decade
  Sex: Male

DRUGS (2)
  1. GALANTAMINE HYDROBROMIDE [Suspect]
     Indication: DEMENTIA ALZHEIMER'S TYPE
     Dosage: ORO DISPERSIBLE TABLET
     Route: 048
     Dates: start: 20120604, end: 20120615
  2. LANSOPRAZOLE [Concomitant]
     Route: 065

REACTIONS (1)
  - GASTRIC ULCER HAEMORRHAGE [None]
